FAERS Safety Report 17347407 (Version 3)
Quarter: 2020Q3

REPORT INFORMATION
  Report Type: Report from Study
  Country: US (occurrence: US)
  Receive Date: 20200130
  Receipt Date: 20200731
  Transmission Date: 20201102
  Serious: Yes (Other)
  Sender: FDA-Public Use
  Company Number: NVSC2020US016564

PATIENT
  Sex: Male

DRUGS (2)
  1. GILENYA [Suspect]
     Active Substance: FINGOLIMOD HYDROCHLORIDE
     Indication: MULTIPLE SCLEROSIS
     Dosage: 0.5 MG, QD
     Route: 048
     Dates: start: 20180614
  2. GILENYA [Suspect]
     Active Substance: FINGOLIMOD HYDROCHLORIDE
     Dosage: 0.5 MG, QOD (NOW TAKING EVERY OTHER DAY AS PRESCRIBED)
     Route: 048
     Dates: start: 20180614

REACTIONS (4)
  - Prescribed underdose [Unknown]
  - Skin cancer [Unknown]
  - Decreased immune responsiveness [Unknown]
  - Skin disorder [Unknown]
